FAERS Safety Report 16126470 (Version 1)
Quarter: 2019Q1

REPORT INFORMATION
  Report Type: Report from Study
  Country: PA (occurrence: PA)
  Receive Date: 20190328
  Receipt Date: 20190328
  Transmission Date: 20190418
  Serious: Yes (Other)
  Sender: FDA-Public Use
  Company Number: PA-EMD SERONO-9080261

PATIENT
  Sex: Female

DRUGS (1)
  1. REBIF [Suspect]
     Active Substance: INTERFERON BETA-1A
     Indication: PRODUCT USED FOR UNKNOWN INDICATION
     Route: 058
     Dates: start: 20110429

REACTIONS (5)
  - Back disorder [Unknown]
  - Needle fatigue [Unknown]
  - Product prescribing error [Unknown]
  - Demyelination [Recovered/Resolved]
  - Limb discomfort [Unknown]
